FAERS Safety Report 15833784 (Version 1)
Quarter: 2019Q1

REPORT INFORMATION
  Report Type: Spontaneous
  Country: GB (occurrence: GB)
  Receive Date: 20190116
  Receipt Date: 20190116
  Transmission Date: 20190417
  Serious: Yes (Hospitalization)
  Sender: FDA-Public Use
  Company Number: GB-PFIZER INC-2019016869

PATIENT
  Age: 45 Year
  Sex: Female
  Weight: 59 kg

DRUGS (7)
  1. DOXORUBICIN [Suspect]
     Active Substance: DOXORUBICIN
     Indication: SARCOMA METASTATIC
     Dosage: UNK
     Route: 042
     Dates: start: 20160407, end: 20160407
  2. MORPHINE SULFATE. [Concomitant]
     Active Substance: MORPHINE SULFATE
     Dosage: UNK (DOSAGE FORM: UNSPECIFIED)
     Route: 065
     Dates: start: 20160406
  3. METOCLOPRAMIDE. [Concomitant]
     Active Substance: METOCLOPRAMIDE
     Dosage: UNK (DOSAGE FORM: UNSPECIFIED)
     Route: 065
     Dates: start: 20160407
  4. DEXAMETHASONE. [Concomitant]
     Active Substance: DEXAMETHASONE
     Dosage: UNK (DOSAGE FORM: UNSPECIFIED)
     Route: 065
     Dates: start: 20160407
  5. ORAMORPH [Concomitant]
     Active Substance: MORPHINE SULFATE
     Dosage: UNK (DOSAGE FORM: UNSPECIFIED)
     Route: 065
     Dates: start: 20160406
  6. CHLORHEXIDINE GLUCONATE. [Concomitant]
     Active Substance: CHLORHEXIDINE GLUCONATE
     Dosage: UNK (DOSAGE FORM: UNSPECIFIED)
     Route: 065
  7. ONDANSETRON [Concomitant]
     Active Substance: ONDANSETRON
     Dosage: UNK (DOSAGE FORM: UNSPECIFIED)
     Route: 065
     Dates: start: 20160407

REACTIONS (5)
  - Constipation [Unknown]
  - Product use in unapproved indication [Unknown]
  - Headache [Recovered/Resolved]
  - Vomiting [Recovered/Resolved]
  - Nausea [Recovered/Resolved]

NARRATIVE: CASE EVENT DATE: 20160407
